FAERS Safety Report 6940961-X (Version None)
Quarter: 2010Q3

REPORT INFORMATION
  Report Type: 
  Country: None (occurrence: None)
  Receive Date: 20100825
  Receipt Date: 20100817
  Transmission Date: 20110219
  Serious: Yes (Hospitalization, Disabling)
  Sender: FDA-Public Use
  Company Number: A0870443A

PATIENT
  Age: 72 Year
  Sex: Male

DRUGS (6)
  1. AVANDIA [Suspect]
     Dosage: 8MG PER DAY
     Route: 048
     Dates: start: 20010821, end: 20040101
  2. ZOCOR [Concomitant]
  3. MONOPRIL [Concomitant]
  4. PRAZOSIN HCL [Concomitant]
  5. FLOMAX [Concomitant]
  6. VOLMAX [Concomitant]

REACTIONS (13)
  - ABASIA [None]
  - APHASIA [None]
  - CEREBROVASCULAR ACCIDENT [None]
  - COMMUNICATION DISORDER [None]
  - DIARRHOEA [None]
  - DIPLOPIA [None]
  - DYSPHAGIA [None]
  - FATIGUE [None]
  - FLUID RETENTION [None]
  - GASTROSTOMY [None]
  - ILL-DEFINED DISORDER [None]
  - RED BLOOD CELL COUNT DECREASED [None]
  - WEIGHT INCREASED [None]
